FAERS Safety Report 14462138 (Version 1)
Quarter: 2018Q1

REPORT INFORMATION
  Report Type: Spontaneous
  Country: DK (occurrence: DK)
  Receive Date: 20180130
  Receipt Date: 20180130
  Transmission Date: 20180509
  Serious: Yes (Hospitalization, Other)
  Sender: FDA-Public Use
  Company Number: DK-PFIZER INC-2018033956

PATIENT
  Sex: Male

DRUGS (2)
  1. VIAGRA [Suspect]
     Active Substance: SILDENAFIL CITRATE
     Indication: ERECTILE DYSFUNCTION
     Dosage: 50 MG, AS NEEDED
  2. VIAGRA [Suspect]
     Active Substance: SILDENAFIL CITRATE
     Dosage: 75 MG, SINGLE

REACTIONS (6)
  - Skin discolouration [Unknown]
  - Penile swelling [Recovering/Resolving]
  - Penile pain [Recovered/Resolved]
  - Penile haemorrhage [Unknown]
  - Erection increased [Recovering/Resolving]
  - Adrenomegaly [Unknown]
